FAERS Safety Report 6671576-9 (Version None)
Quarter: 2010Q2

REPORT INFORMATION
  Report Type: 
  Country: None (occurrence: None)
  Receive Date: 20100406
  Receipt Date: 20100406
  Transmission Date: 20101027
  Serious: Yes (Other)
  Sender: FDA-Public Use
  Company Number: None

PATIENT
  Age: 54 Year
  Sex: Female
  Weight: 58.9676 kg

DRUGS (1)
  1. ACTONEL [Suspect]
     Indication: OSTEOPENIA
     Dosage: 150 MG ONCE PER MONTH PO
     Route: 048

REACTIONS (4)
  - ARTHRALGIA [None]
  - BONE PAIN [None]
  - DECREASED ACTIVITY [None]
  - MYALGIA [None]
